FAERS Safety Report 7277232-0 (Version None)
Quarter: 2011Q1

REPORT INFORMATION
  Report Type: 
  Country: None (occurrence: None)
  Receive Date: 20110202
  Receipt Date: 20110202
  Transmission Date: 20110831
  Serious: Yes (Other)
  Sender: FDA-Public Use
  Company Number: None

PATIENT
  Age: 45 Year
  Sex: Female
  Weight: 58.9676 kg

DRUGS (1)
  1. CYMBALTA [Suspect]
     Indication: FIBROMYALGIA
     Dosage: 60 MG Q.D. ONCE PO
     Route: 048
     Dates: start: 20100201

REACTIONS (14)
  - AFFECT LABILITY [None]
  - APHASIA [None]
  - PARAESTHESIA [None]
  - COGNITIVE DISORDER [None]
  - CLUMSINESS [None]
  - NAUSEA [None]
  - MIGRAINE [None]
  - ATAXIA [None]
  - TINNITUS [None]
  - WITHDRAWAL SYNDROME [None]
  - MOOD ALTERED [None]
  - GAIT DISTURBANCE [None]
  - MEMORY IMPAIRMENT [None]
  - IRRITABILITY [None]
